FAERS Safety Report 9540451 (Version 3)
Quarter: 2013Q4

REPORT INFORMATION
  Report Type: Spontaneous
  Country: DE (occurrence: DE)
  Receive Date: 20130920
  Receipt Date: 20131121
  Transmission Date: 20140711
  Serious: Yes (Death, Hospitalization)
  Sender: FDA-Public Use
  Company Number: DE-GLAXOSMITHKLINE-D0081167A

PATIENT
  Age: 53 Year
  Sex: Male

DRUGS (3)
  1. REQUIP-MODUTAB [Suspect]
     Indication: PARKINSON^S DISEASE
     Dosage: 2MG PER DAY
     Route: 048
     Dates: start: 20130325, end: 20130701
  2. MOTILIUM [Concomitant]
     Dosage: 10MG THREE TIMES PER DAY
     Route: 048
     Dates: start: 20130325
  3. BISOPROLOL [Concomitant]
     Indication: HYPERTENSION
     Dosage: 5MG UNKNOWN
     Route: 048

REACTIONS (19)
  - Septic shock [Fatal]
  - Multi-organ failure [Fatal]
  - Cardiac failure [Not Recovered/Not Resolved]
  - Hepatic failure [Not Recovered/Not Resolved]
  - Renal failure [Not Recovered/Not Resolved]
  - Ejection fraction decreased [Not Recovered/Not Resolved]
  - Cardiogenic shock [Recovered/Resolved]
  - Cardiac failure [Recovered/Resolved]
  - Atrial thrombosis [Recovered/Resolved]
  - Respiratory failure [Unknown]
  - Cardiac arrest [Recovered/Resolved]
  - Cardiomyopathy acute [Unknown]
  - Ischaemic hepatitis [Unknown]
  - Heart rate increased [Unknown]
  - Hypotension [Unknown]
  - Condition aggravated [Unknown]
  - Cardiac disorder [Unknown]
  - Oedema peripheral [Unknown]
  - Hyperhidrosis [Unknown]
